FAERS Safety Report 24897021 (Version 1)
Quarter: 2025Q1

REPORT INFORMATION
  Report Type: Spontaneous
  Country: GB (occurrence: GB)
  Receive Date: 20250128
  Receipt Date: 20250128
  Transmission Date: 20250409
  Serious: No
  Sender: ALKEM
  Company Number: None

PATIENT
  Age: 44 Year
  Sex: Male
  Weight: 70 kg

DRUGS (2)
  1. CEPHALEXIN [Suspect]
     Active Substance: CEPHALEXIN
     Indication: Ill-defined disorder
     Route: 065
     Dates: start: 20240312
  2. EPIPEN [Concomitant]
     Active Substance: EPINEPHRINE
     Indication: Ill-defined disorder
     Route: 030
     Dates: start: 20230630

REACTIONS (1)
  - Rash macular [Recovering/Resolving]

NARRATIVE: CASE EVENT DATE: 20240312
